FAERS Safety Report 18074320 (Version 1)
Quarter: 2020Q3

REPORT INFORMATION
  Report Type: Spontaneous
  Country: IT (occurrence: IT)
  Receive Date: 20200727
  Receipt Date: 20200727
  Transmission Date: 20201103
  Serious: Yes (Life-Threatening)
  Sender: FDA-Public Use
  Company Number: IT-ASTRAZENECA-2020SE93262

PATIENT
  Age: 65 Year
  Sex: Female

DRUGS (12)
  1. CARDURA [Concomitant]
     Active Substance: DOXAZOSIN MESYLATE
  2. QUETIAPINE FUMARATE. [Suspect]
     Active Substance: QUETIAPINE FUMARATE
     Indication: SUICIDE ATTEMPT
     Dosage: 18.0G ONCE/SINGLE ADMINISTRATION
     Route: 048
     Dates: start: 20200505, end: 20200505
  3. TRITTICO [Concomitant]
     Active Substance: TRAZODONE HYDROCHLORIDE
  4. DENIBAN [Concomitant]
     Active Substance: AMISULPRIDE
  5. GABAPENTIN. [Concomitant]
     Active Substance: GABAPENTIN
  6. DELORAZEPAM [Concomitant]
     Active Substance: DELORAZEPAM
     Dosage: 20.0GTT UNKNOWN
  7. TRIAZOLAM. [Suspect]
     Active Substance: TRIAZOLAM
     Indication: SUICIDE ATTEMPT
     Dosage: 12.5MG ONCE/SINGLE ADMINISTRATION
     Route: 048
     Dates: start: 20200505, end: 20200505
  8. CARBOLITHIUM [Concomitant]
     Active Substance: LITHIUM CARBONATE
  9. MIRTAZAPINE. [Concomitant]
     Active Substance: MIRTAZAPINE
  10. SERTRALINE [Concomitant]
     Active Substance: SERTRALINE HYDROCHLORIDE
  11. VALDORM [Concomitant]
  12. MOVICOL [Concomitant]
     Active Substance: POLYETHYLENE GLYCOL 3350\POTASSIUM CHLORIDE\SODIUM BICARBONATE\SODIUM CHLORIDE
     Dosage: 1.0DF UNKNOWN

REACTIONS (2)
  - Coma [Unknown]
  - Drug abuse [Unknown]

NARRATIVE: CASE EVENT DATE: 20200505
